FAERS Safety Report 7893710-5 (Version None)
Quarter: 2011Q4

REPORT INFORMATION
  Report Type: 
  Country: None (occurrence: None)
  Receive Date: 20111104
  Receipt Date: 20111024
  Transmission Date: 20120403
  Serious: Yes (Other)
  Sender: FDA-Public Use
  Company Number: DE-CELGENEUS-062-20785-11102685

PATIENT
  Age: 80 Year

DRUGS (1)
  1. THALIDOMIDE [Suspect]
     Route: 048

REACTIONS (3)
  - CARDIOVASCULAR DISORDER [None]
  - BLOOD PRODUCT TRANSFUSION DEPENDENT [None]
  - RESPIRATORY DISORDER [None]
